FAERS Safety Report 6051502-6 (Version None)
Quarter: 2009Q1

REPORT INFORMATION
  Report Type: 
  Country: None (occurrence: None)
  Receive Date: 20090126
  Receipt Date: 20090116
  Transmission Date: 20090719
  Serious: Yes (Death)
  Sender: FDA-Public Use
  Company Number: A0764934A

PATIENT
  Age: 74 Year
  Sex: Male
  Weight: 59.1 kg

DRUGS (2)
  1. AVANDIA [Suspect]
     Dosage: 4MG PER DAY
     Route: 048
     Dates: start: 20000101, end: 20060826
  2. AVANDAMET [Suspect]
     Dosage: 1000U PER DAY
     Route: 048
     Dates: start: 20000101, end: 20060826

REACTIONS (2)
  - DEATH [None]
  - HEART INJURY [None]
